FAERS Safety Report 16744689 (Version 2)
Quarter: 2019Q3

REPORT INFORMATION
  Report Type: Report from Study
  Country: US (occurrence: US)
  Receive Date: 20190827
  Receipt Date: 20190910
  Transmission Date: 20191005
  Serious: Yes (Congenital Anomaly, Other)
  Sender: FDA-Public Use
  Company Number: US-ROCHE-2393244

PATIENT

DRUGS (1)
  1. OSELTAMIVIR [Suspect]
     Active Substance: OSELTAMIVIR
     Indication: PRODUCT USED FOR UNKNOWN INDICATION
     Route: 064

REACTIONS (13)
  - Congenital central nervous system anomaly [Unknown]
  - Pulmonary valve stenosis [Unknown]
  - Patent ductus arteriosus [Unknown]
  - Bicuspid aortic valve [Unknown]
  - Foetal exposure during pregnancy [Unknown]
  - Hydrocephalus [Unknown]
  - Pulmonary artery stenosis [Unknown]
  - Aortic valve incompetence [Unknown]
  - Ventricular septal defect [Unknown]
  - Atrial septal defect [Unknown]
  - Small for dates baby [Unknown]
  - Congenital hydronephrosis [Unknown]
  - Hypospadias [Unknown]
